FAERS Safety Report 8594194-4 (Version None)
Quarter: 2012Q3

REPORT INFORMATION
  Report Type: 
  Country: None (occurrence: None)
  Receive Date: 20120814
  Receipt Date: 20120813
  Transmission Date: 20120928
  Serious: No
  Sender: FDA-Public Use
  Company Number: JP-B.I. PHARMACEUTICALS,INC./RIDGEFIELD-2012-BP-13221NB

PATIENT
  Age: 39 Year
  Sex: Male

DRUGS (2)
  1. TRAZENTA [Suspect]
     Indication: TYPE 2 DIABETES MELLITUS
     Dosage: 5 MG
     Route: 048
     Dates: start: 20120509, end: 20120604
  2. CYANAMIDE [Suspect]
     Indication: ABSTAINS FROM ALCOHOL
     Dosage: 10 ML
     Route: 048
     Dates: start: 20120516, end: 20120531

REACTIONS (2)
  - DRUG ERUPTION [None]
  - NASOPHARYNGITIS [None]
